FAERS Safety Report 18316554 (Version 1)
Quarter: 2020Q3

REPORT INFORMATION
  Report Type: Other
  Country: US (occurrence: US)
  Receive Date: 20200927
  Receipt Date: 20200927
  Transmission Date: 20201103
  Serious: Yes (Hospitalization)
  Sender: FDA-Public Use
  Company Number: US-ROCHE-2685130

PATIENT
  Sex: Male

DRUGS (2)
  1. XELODA [Suspect]
     Active Substance: CAPECITABINE
     Dosage: TAKE 3 TABLETS(1500 MG) TWICE A DAY TAKE MONDAY THROUGH FRIDAY WITH RADIATION THERAPY
     Route: 048
     Dates: start: 20200807
  2. XELODA [Suspect]
     Active Substance: CAPECITABINE
     Indication: RECTAL CANCER
     Dosage: TAKE 3 TABLET(S) BY MOUTH TWICE A DAY MONDAY THROUGH FRIDAY WITH RADIATION
     Route: 048

REACTIONS (1)
  - Fall [Unknown]
